FAERS Safety Report 8695303 (Version 3)
Quarter: 2013Q4

REPORT INFORMATION
  Report Type: Spontaneous
  Country: US (occurrence: US)
  Receive Date: 20120731
  Receipt Date: 20131105
  Transmission Date: 20140711
  Serious: Yes (Death, Disabling)
  Sender: FDA-Public Use
  Company Number: US-009507513-1207USA010506

PATIENT
  Age: 32 Year
  Sex: Female

DRUGS (4)
  1. SAPHRIS [Suspect]
     Indication: BIPOLAR DISORDER
     Dosage: 5 MG, HS
     Route: 060
     Dates: start: 20111109
  2. VALIUM [Concomitant]
     Dosage: UNK, UNKNOWN
  3. DEPAKOTE [Concomitant]
     Dosage: 250 MG, BID
  4. PRISTIQ [Concomitant]

REACTIONS (1)
  - Death [Fatal]
